FAERS Safety Report 13337568 (Version 1)
Quarter: 2017Q1

REPORT INFORMATION
  Report Type: Spontaneous
  Country: US (occurrence: US)
  Receive Date: 20170314
  Receipt Date: 20170314
  Transmission Date: 20170428
  Serious: No
  Sender: FDA-Public Use
  Company Number: None

PATIENT
  Age: 81 Year
  Sex: Female

DRUGS (1)
  1. REVLIMID [Suspect]
     Active Substance: LENALIDOMIDE
     Indication: PLASMA CELL MYELOMA
     Route: 048
     Dates: start: 20140620, end: 20140707

REACTIONS (5)
  - Eye swelling [None]
  - Swollen tongue [None]
  - Rash pruritic [None]
  - Rash erythematous [None]
  - Lip swelling [None]

NARRATIVE: CASE EVENT DATE: 20140709
